FAERS Safety Report 25740230 (Version 1)
Quarter: 2025Q3

REPORT INFORMATION
  Report Type: Spontaneous
  Country: US (occurrence: None)
  Receive Date: 20250828
  Receipt Date: 20250828
  Transmission Date: 20251021
  Serious: Yes (Hospitalization)
  Sender: FDA-CTU
  Company Number: None

PATIENT
  Age: 57 Year
  Sex: Male
  Weight: 84 kg

DRUGS (1)
  1. REBYOTA [Suspect]
     Active Substance: DONOR HUMAN STOOL
     Indication: Clostridium difficile colitis
     Route: 054
     Dates: start: 20250815, end: 20250815

REACTIONS (3)
  - Diarrhoea [None]
  - Dehydration [None]
  - Colitis ulcerative [None]

NARRATIVE: CASE EVENT DATE: 20250825
